FAERS Safety Report 5417722-6 (Version None)
Quarter: 2007Q3

REPORT INFORMATION
  Report Type: 
  Country: None (occurrence: None)
  Receive Date: 20070815
  Receipt Date: 20070815
  Transmission Date: 20080115
  Serious: Yes (Hospitalization)
  Sender: FDA-Public Use
  Company Number: None

PATIENT
  Sex: Male
  Weight: 68.0396 kg

DRUGS (6)
  1. ERBITUX [Suspect]
     Indication: THROAT CANCER
     Dosage: IV
     Route: 042
     Dates: start: 20061024
  2. NORVASC [Concomitant]
  3. PREVACID [Concomitant]
  4. ASPIRIN [Concomitant]
  5. ZOLOFT [Concomitant]
  6. FLOMAX [Concomitant]

REACTIONS (5)
  - ANAPHYLACTIC REACTION [None]
  - DIZZINESS [None]
  - PRURITUS [None]
  - SYNCOPE [None]
  - UNRESPONSIVE TO STIMULI [None]
